FAERS Safety Report 19082755 (Version 1)
Quarter: 2021Q2

REPORT INFORMATION
  Report Type: Spontaneous
  Country: US (occurrence: US)
  Receive Date: 20210401
  Receipt Date: 20210401
  Transmission Date: 20210717
  Serious: No
  Sender: FDA-Public Use
  Company Number: None

PATIENT
  Age: 37 Year
  Sex: Male
  Weight: 99 kg

DRUGS (6)
  1. ALDARA [Concomitant]
     Active Substance: IMIQUIMOD
  2. IMIQUIMOD. [Concomitant]
     Active Substance: IMIQUIMOD
  3. ERIVEDGE [Suspect]
     Active Substance: VISMODEGIB
     Indication: BASAL CELL CARCINOMA
     Route: 048
     Dates: start: 20210210, end: 20210326
  4. DESONIDE. [Concomitant]
     Active Substance: DESONIDE
  5. VITAMIN D (ERGOCALCIFEROL) [Concomitant]
     Active Substance: ERGOCALCIFEROL
  6. TEMOVATE [Concomitant]
     Active Substance: CLOBETASOL PROPIONATE

REACTIONS (2)
  - Therapy cessation [None]
  - Muscle spasms [None]

NARRATIVE: CASE EVENT DATE: 20210226
